FAERS Safety Report 6187312-9 (Version None)
Quarter: 2009Q2

REPORT INFORMATION
  Report Type: 
  Country: None (occurrence: None)
  Receive Date: 20090512
  Receipt Date: 20090507
  Transmission Date: 20091009
  Serious: No
  Sender: FDA-Public Use
  Company Number: US-JNJFOC-20090205321

PATIENT
  Age: 55 Year
  Sex: Female

DRUGS (4)
  1. DURAGESIC-100 [Suspect]
     Indication: DIABETIC NEUROPATHY
     Route: 062
  2. FENTANYL TRANSDERMAL SYSTEM [Suspect]
     Indication: DRUG USE FOR UNKNOWN INDICATION
     Route: 062
  3. INSULIN [Concomitant]
     Indication: DIABETES MELLITUS
     Route: 065
  4. UNSPECIFIED MEDICATIONS [Concomitant]
     Route: 065

REACTIONS (2)
  - DRUG EFFECT DECREASED [None]
  - INAPPROPRIATE SCHEDULE OF DRUG ADMINISTRATION [None]
